FAERS Safety Report 5459947-X (Version None)
Quarter: 2007Q3

REPORT INFORMATION
  Report Type: 
  Country: None (occurrence: None)
  Receive Date: 20070919
  Receipt Date: 20070430
  Transmission Date: 20080115
  Serious: Yes (Hospitalization)
  Sender: FDA-Public Use
  Company Number: US-ASTRAZENECA-2007UW09227

PATIENT
  Sex: Female
  Weight: 98.6 kg

DRUGS (3)
  1. SEROQUEL [Suspect]
     Indication: BIPOLAR DISORDER
     Route: 048
     Dates: start: 20010101
  2. SEROQUEL [Suspect]
     Indication: DEPRESSION
     Route: 048
     Dates: start: 20010101
  3. LEXAPRO [Concomitant]
     Route: 048
     Dates: start: 20061206

REACTIONS (2)
  - CHEST PAIN [None]
  - DIABETES MELLITUS [None]
